FAERS Safety Report 25622509 (Version 1)
Quarter: 2025Q3

REPORT INFORMATION
  Report Type: Spontaneous
  Country: US (occurrence: US)
  Receive Date: 20250730
  Receipt Date: 20250730
  Transmission Date: 20251020
  Serious: Yes (Other)
  Sender: BLUEPRINT MEDICINES
  Company Number: US-Blueprint Medicines Corporation-2025-AER-01625

PATIENT
  Age: 62 Year
  Sex: Female

DRUGS (1)
  1. AYVAKIT [Suspect]
     Active Substance: AVAPRITINIB
     Indication: Systemic mastocytosis
     Route: 065
     Dates: start: 20250218

REACTIONS (6)
  - Systemic mastocytosis [Unknown]
  - Condition aggravated [Unknown]
  - Arthralgia [Unknown]
  - Tryptase increased [Unknown]
  - Pruritus [Unknown]
  - Nausea [Unknown]
